FAERS Safety Report 7934462-X (Version None)
Quarter: 2011Q4

REPORT INFORMATION
  Report Type: 
  Country: None (occurrence: None)
  Receive Date: 20111122
  Receipt Date: 20110926
  Transmission Date: 20120403
  Serious: Yes (Other)
  Sender: FDA-Public Use
  Company Number: JP-GLAXOSMITHKLINE-B0751631A

PATIENT
  Age: 46 Year
  Sex: Male

DRUGS (3)
  1. DESYREL [Concomitant]
     Dosage: 25MG PER DAY
     Route: 048
  2. LAMICTAL [Suspect]
     Indication: BIPOLAR DISORDER
     Dosage: 50MG PER DAY
     Route: 048
  3. REMERON [Concomitant]
     Dosage: 15MG PER DAY
     Route: 048

REACTIONS (2)
  - HYPERTHERMIA [None]
  - RASH [None]
